FAERS Safety Report 7491059-6 (Version None)
Quarter: 2011Q2

REPORT INFORMATION
  Report Type: 
  Country: None (occurrence: None)
  Receive Date: 20110519
  Receipt Date: 20110516
  Transmission Date: 20111010
  Serious: Yes (Congenital Anomaly)
  Sender: FDA-Public Use
  Company Number: FR-ABBOTT-11P-056-0726408-00

PATIENT
  Sex: Male

DRUGS (1)
  1. DEPAKENE [Suspect]
     Indication: DRUG EXPOSURE DURING PREGNANCY
     Route: 064

REACTIONS (8)
  - DYSGRAPHIA [None]
  - COORDINATION ABNORMAL [None]
  - DRUG EXPOSURE DURING PREGNANCY [None]
  - VISUAL IMPAIRMENT [None]
  - PSYCHOMOTOR RETARDATION [None]
  - INTELLIGENCE TEST ABNORMAL [None]
  - SPEECH DISORDER [None]
  - CONGENITAL GENITOURINARY ABNORMALITY [None]
